FAERS Safety Report 12234776 (Version 3)
Quarter: 2020Q1

REPORT INFORMATION
  Report Type: Report from Study
  Country: CO (occurrence: CO)
  Receive Date: 20160404
  Receipt Date: 20200206
  Transmission Date: 20200409
  Serious: Yes (Other)
  Sender: FDA-Public Use
  Company Number: CO-JNJFOC-20160330134

PATIENT
  Age: 28 Year
  Sex: Male
  Weight: 60 kg

DRUGS (1)
  1. RISPERDAL CONSTA [Suspect]
     Active Substance: RISPERIDONE
     Indication: SCHIZOPHRENIA
     Dosage: THERAPY START DATE WAS PREVIOUSLY REPORTED AS 15-JUN-2007.
     Route: 030
     Dates: start: 20101008

REACTIONS (3)
  - Logorrhoea [Unknown]
  - Soliloquy [Not Recovered/Not Resolved]
  - Mutism [Not Recovered/Not Resolved]

NARRATIVE: CASE EVENT DATE: 20160224
